FAERS Safety Report 23895550 (Version 1)
Quarter: 2024Q2

REPORT INFORMATION
  Report Type: Spontaneous
  Country: US (occurrence: US)
  Receive Date: 20240524
  Receipt Date: 20240524
  Transmission Date: 20240716
  Serious: Yes (Other)
  Sender: FDA-Public Use
  Company Number: US-002147023-NVSC2024US106099

PATIENT
  Age: 34 Year
  Sex: Female

DRUGS (3)
  1. ENTRESTO [Suspect]
     Active Substance: SACUBITRIL\VALSARTAN
     Indication: Product used for unknown indication
     Dosage: UNK
     Route: 065
  2. METOPROLOL [Suspect]
     Active Substance: METOPROLOL
     Indication: Product used for unknown indication
     Route: 065
  3. FARXIGA [Suspect]
     Active Substance: DAPAGLIFLOZIN PROPANEDIOL
     Indication: Product used for unknown indication
     Route: 065

REACTIONS (10)
  - Myocarditis [Unknown]
  - Ventricular hypokinesia [Unknown]
  - General physical health deterioration [Unknown]
  - Pain [Unknown]
  - COVID-19 [Unknown]
  - Somnolence [Unknown]
  - Left ventricular dysfunction [Unknown]
  - Hypertension [Unknown]
  - Feeling abnormal [Unknown]
  - Tachycardia [Unknown]
